FAERS Safety Report 24565631 (Version 1)
Quarter: 2024Q4

REPORT INFORMATION
  Report Type: Spontaneous
  Country: US (occurrence: US)
  Receive Date: 20241030
  Receipt Date: 20241030
  Transmission Date: 20250115
  Serious: Yes (Hospitalization)
  Sender: DOMPE FARMACEUTICI
  Company Number: US-FARMAPROD-202410-3655

PATIENT
  Sex: Male

DRUGS (1)
  1. OXERVATE [Suspect]
     Active Substance: CENEGERMIN-BKBJ
     Indication: Product used for unknown indication
     Route: 047

REACTIONS (4)
  - Urinary tract infection [Unknown]
  - Pyrexia [Recovering/Resolving]
  - Eye pain [Unknown]
  - Chills [Unknown]

NARRATIVE: CASE EVENT DATE: 20241001
